FAERS Safety Report 16258724 (Version 1)
Quarter: 2019Q2

REPORT INFORMATION
  Report Type: Spontaneous
  Country: CN (occurrence: CN)
  Receive Date: 20190430
  Receipt Date: 20190430
  Transmission Date: 20190711
  Serious: Yes (Other)
  Sender: FDA-Public Use
  Company Number: CN-BAXTER-2019BAX008514

PATIENT
  Age: 60 Year
  Sex: Female
  Weight: 71 kg

DRUGS (12)
  1. 0.9% SODIUM CHLORIDE INJECTION [Suspect]
     Active Substance: SODIUM CHLORIDE
     Dosage: 1ST CHEMOTHERAPY, DOCETAXEL INJECTION (TAXOTERE) + NS
     Route: 041
  2. TAXOTERE [Suspect]
     Active Substance: DOCETAXEL
     Indication: BREAST CANCER FEMALE
     Dosage: 1ST CHEMOTHERAPY, DOCETAXEL INJECTION (TAXOTERE) + NS
     Route: 041
  3. TAXOTERE [Suspect]
     Active Substance: DOCETAXEL
     Dosage: 2ND CHEMOTHERAPY, DOCETAXEL INJECTION (TAXOTERE) 132 MG + NS 250 ML
     Route: 041
     Dates: start: 20190322, end: 20190322
  4. TAXOTERE [Suspect]
     Active Substance: DOCETAXEL
     Dosage: DOCETAXEL INJECTION (TAXOTERE) + NS, DOSE RE-INTRODUCED
     Route: 041
  5. 0.9% SODIUM CHLORIDE INJECTION [Suspect]
     Active Substance: SODIUM CHLORIDE
     Indication: MEDICATION DILUTION
     Dosage: 1ST CHEMOTHERAPY, CYCLOPHOSPHAMIDE FOR INJECTION (ENDOXAN) + NS
     Route: 041
  6. 0.9% SODIUM CHLORIDE INJECTION [Suspect]
     Active Substance: SODIUM CHLORIDE
     Dosage: CYCLOPHOSPHAMIDE FOR INJECTION (ENDOXAN) + NS, DOSE RE-INTRODUCED
     Route: 041
  7. 0.9% SODIUM CHLORIDE INJECTION [Suspect]
     Active Substance: SODIUM CHLORIDE
     Dosage: 2ND CHEMOTHERAPY, CYCLOPHOSPHAMIDE FOR INJECTION (ENDOXAN) 980 MG + NS 50 ML
     Route: 041
     Dates: start: 20190322, end: 20190322
  8. ENDOXAN [Suspect]
     Active Substance: CYCLOPHOSPHAMIDE
     Dosage: DOSAGE FORM: INJECTION, 2ND CHEMOTHERAPY, CYCLOPHOSPHAMIDE FOR INJECTION (ENDOXAN) 980 MG + NS 50 ML
     Route: 041
     Dates: start: 20190322, end: 20190322
  9. 0.9% SODIUM CHLORIDE INJECTION [Suspect]
     Active Substance: SODIUM CHLORIDE
     Dosage: 2ND CHEMOTHERAPY, DOCETAXEL INJECTION (TAXOTERE) 132 MG + NS 250 ML
     Route: 041
     Dates: start: 20190322, end: 20190322
  10. 0.9% SODIUM CHLORIDE INJECTION [Suspect]
     Active Substance: SODIUM CHLORIDE
     Dosage: DOCETAXEL INJECTION (TAXOTERE) + NS, DOSE RE-INTRODUCED
     Route: 041
  11. ENDOXAN [Suspect]
     Active Substance: CYCLOPHOSPHAMIDE
     Indication: BREAST CANCER FEMALE
     Dosage: DOSAGE FORM: INJECTION, 1ST CHEMOTHERAPY, CYCLOPHOSPHAMIDE FOR INJECTION (ENDOXAN) + NS
     Route: 041
  12. ENDOXAN [Suspect]
     Active Substance: CYCLOPHOSPHAMIDE
     Dosage: DOSAGE FORM: INJECTION, CYCLOPHOSPHAMIDE FOR INJECTION (ENDOXAN) + NS, DOSE RE-INTRODUCED
     Route: 041

REACTIONS (1)
  - Agranulocytosis [Recovered/Resolved]

NARRATIVE: CASE EVENT DATE: 20190328
